FAERS Safety Report 25049433 (Version 1)
Quarter: 2025Q1

REPORT INFORMATION
  Report Type: Spontaneous
  Country: IT (occurrence: IT)
  Receive Date: 20250307
  Receipt Date: 20250307
  Transmission Date: 20250409
  Serious: Yes (Disabling)
  Sender: ROCHE
  Company Number: IT-ROCHE-10000220797

PATIENT
  Age: 85 Year
  Sex: Female

DRUGS (6)
  1. IBANDRONIC ACID [Suspect]
     Active Substance: IBANDRONIC ACID
     Indication: Osteoporosis
     Route: 048
     Dates: start: 2007, end: 201712
  2. ALENDRONATE SODIUM [Suspect]
     Active Substance: ALENDRONATE SODIUM
     Indication: Osteoporosis
     Route: 048
     Dates: start: 20210120, end: 20240320
  3. CHOLECALCIFEROL [Concomitant]
     Active Substance: CHOLECALCIFEROL
     Dates: start: 201801, end: 202404
  4. ATORVASTATIN [Concomitant]
     Active Substance: ATORVASTATIN
     Dates: end: 20231005
  5. FUROSEMIDE [Concomitant]
     Active Substance: FUROSEMIDE
  6. DAPAGLIFLOZIN [Concomitant]
     Active Substance: DAPAGLIFLOZIN

REACTIONS (2)
  - Exposed bone in jaw [Not Recovered/Not Resolved]
  - Loose tooth [Not Recovered/Not Resolved]
